FAERS Safety Report 18081299 (Version 1)
Quarter: 2020Q3

REPORT INFORMATION
  Report Type: Report from Study
  Country: DE (occurrence: DE)
  Receive Date: 20200728
  Receipt Date: 20200728
  Transmission Date: 20201103
  Serious: Yes (Hospitalization, Other)
  Sender: FDA-Public Use
  Company Number: DE-GILEAD-2020-0472962

PATIENT
  Age: 67 Year
  Sex: Male
  Weight: 95 kg

DRUGS (12)
  1. PANTOZOL [Concomitant]
     Active Substance: PANTOPRAZOLE SODIUM
  2. CLEXANE [Concomitant]
     Active Substance: ENOXAPARIN SODIUM
  3. AZILSARTAN [Concomitant]
     Active Substance: AZILSARTAN KAMEDOXOMIL
  4. ENTECAVIR. [Concomitant]
     Active Substance: ENTECAVIR
  5. ALLOPURINOL. [Concomitant]
     Active Substance: ALLOPURINOL
  6. LANTUS [Concomitant]
     Active Substance: INSULIN GLARGINE
  7. ACICLOVIR [Concomitant]
     Active Substance: ACYCLOVIR
  8. IDELALISIB [Suspect]
     Active Substance: IDELALISIB
     Indication: PRODUCT USED FOR UNKNOWN INDICATION
     Route: 065
  9. HUMALOG [Concomitant]
     Active Substance: INSULIN LISPRO
  10. LIDOCAIN [LIDOCAINE HYDROCHLORIDE] [Concomitant]
  11. L?THYROXIN [LEVOTHYROXINE SODIUM] [Concomitant]
     Active Substance: LEVOTHYROXINE SODIUM
  12. PARACODIN N [DIHYDROCODEINE THIOCYANATE] [Concomitant]
     Active Substance: DIHYDROCODEINE THIOCYANATE

REACTIONS (1)
  - Bacterial sepsis [Recovered/Resolved]

NARRATIVE: CASE EVENT DATE: 20200225
